FAERS Safety Report 16702165 (Version 1)
Quarter: 2019Q3

REPORT INFORMATION
  Report Type: Spontaneous
  Country: US (occurrence: US)
  Receive Date: 20190813
  Receipt Date: 20190813
  Transmission Date: 20191004
  Serious: Yes (Disabling)
  Sender: FDA-Public Use
  Company Number: None

PATIENT
  Age: 31 Year
  Sex: Male
  Weight: 96.75 kg

DRUGS (1)
  1. LAMOTRIGINE. [Suspect]
     Active Substance: LAMOTRIGINE
     Indication: PSYCHOLOGICAL TRAUMA
     Route: 048

REACTIONS (8)
  - Mouth breathing [None]
  - Periodontitis [None]
  - Gingival recession [None]
  - Dry mouth [None]
  - Swollen tongue [None]
  - Gingival graft [None]
  - Gingival disorder [None]
  - Rhinitis [None]

NARRATIVE: CASE EVENT DATE: 20180801
